FAERS Safety Report 11884562 (Version 1)
Quarter: 2016Q1

REPORT INFORMATION
  Report Type: Spontaneous
  Country: US (occurrence: US)
  Receive Date: 20160104
  Receipt Date: 20160104
  Transmission Date: 20160526
  Serious: Yes (Hospitalization)
  Sender: FDA-Public Use
  Company Number: US-BEH-2015057214

PATIENT
  Sex: Male
  Weight: 78 kg

DRUGS (24)
  1. ZEMAIRA [Suspect]
     Active Substance: .ALPHA.1-PROTEINASE INHIBITOR HUMAN
     Indication: ALPHA-1 ANTI-TRYPSIN DEFICIENCY
     Dosage: 972 MG/VL
     Route: 042
     Dates: start: 20090306
  2. LACTULOSE. [Concomitant]
     Active Substance: LACTULOSE
  3. VITAMIN D3 [Concomitant]
     Active Substance: CHOLECALCIFEROL
  4. LOVENOX [Concomitant]
     Active Substance: ENOXAPARIN SODIUM
  5. ADVAIR HFA [Concomitant]
     Active Substance: FLUTICASONE PROPIONATE\SALMETEROL XINAFOATE
  6. LIDOCAINE. [Concomitant]
     Active Substance: LIDOCAINE
  7. OXYGEN. [Concomitant]
     Active Substance: OXYGEN
  8. TOPIRAMATE. [Concomitant]
     Active Substance: TOPIRAMATE
  9. MULTIVITAMINS [Concomitant]
     Active Substance: VITAMINS
  10. OXYCODONE [Concomitant]
     Active Substance: OXYCODONE
  11. ALBUTEROL. [Concomitant]
     Active Substance: ALBUTEROL
  12. SODIUM CHLORIDE. [Concomitant]
     Active Substance: SODIUM CHLORIDE
  13. SPIRONOLACTONE. [Concomitant]
     Active Substance: SPIRONOLACTONE
  14. XIFAXAN [Concomitant]
     Active Substance: RIFAXIMIN
  15. SPIRIVA [Concomitant]
     Active Substance: TIOTROPIUM BROMIDE MONOHYDRATE
  16. DIPHENHYDRAMINE. [Concomitant]
     Active Substance: DIPHENHYDRAMINE
  17. EPIPEN [Concomitant]
     Active Substance: EPINEPHRINE
  18. PROPRANOLOL [Concomitant]
     Active Substance: PROPRANOLOL\PROPRANOLOL HYDROCHLORIDE
  19. SEROQUEL [Concomitant]
     Active Substance: QUETIAPINE FUMARATE
  20. PROAIR HFA [Concomitant]
     Active Substance: ALBUTEROL SULFATE
  21. LORATADINE. [Concomitant]
     Active Substance: LORATADINE
  22. FUROSEMIDE. [Concomitant]
     Active Substance: FUROSEMIDE
  23. SUPER B-COMPLEX [Concomitant]
  24. POTASSIUM [Concomitant]
     Active Substance: POTASSIUM

REACTIONS (1)
  - Fluid retention [Unknown]
